FAERS Safety Report 5256427-1 (Version None)
Quarter: 2007Q1

REPORT INFORMATION
  Report Type: 
  Country: None (occurrence: None)
  Receive Date: 20070301
  Receipt Date: 20070222
  Transmission Date: 20070707
  Serious: Yes (Other)
  Sender: FDA-Public Use
  Company Number: 236750

PATIENT
  Sex: Female
  Weight: 66.7 kg

DRUGS (9)
  1. XOLAIR [Suspect]
     Indication: ASTHMA
     Dosage: 300 MG, Q2W, SUBCUTANEOUS
     Route: 058
     Dates: start: 20030401
  2. ALDACTONE [Concomitant]
  3. DIFLUCAN [Concomitant]
  4. LASIX [Concomitant]
  5. MEDICATION (UNK INGREDIENT) (GENERIC COMPONENT(S) NOT KNOWN) [Concomitant]
  6. SYNTHROID [Concomitant]
  7. PREMARIN [Concomitant]
  8. CONCERTA [Concomitant]
  9. Z0FRAN (ONDANSETRON HYDROCHLORIDE) [Concomitant]

REACTIONS (11)
  - BONE PAIN [None]
  - DYSPNOEA [None]
  - FATIGUE [None]
  - FEELING ABNORMAL [None]
  - INJECTION SITE IRRITATION [None]
  - INJECTION SITE REACTION [None]
  - INJECTION SITE SWELLING [None]
  - INJECTION SITE WARMTH [None]
  - MYALGIA [None]
  - PYREXIA [None]
  - WHEEZING [None]
